FAERS Safety Report 21132264 (Version 1)
Quarter: 2022Q3

REPORT INFORMATION
  Report Type: Other
  Country: GB (occurrence: GB)
  Receive Date: 20220726
  Receipt Date: 20220726
  Transmission Date: 20221027
  Serious: Yes (Hospitalization, Other)
  Sender: FDA-Public Use
  Company Number: GB-MHRA-MED-202207110930420230-TDQZL

PATIENT
  Age: 33 Year
  Sex: Female

DRUGS (3)
  1. LEVETIRACETAM [Suspect]
     Active Substance: LEVETIRACETAM
     Indication: Brain abscess
     Dosage: 750 MG, BID, UNCOATED
     Route: 048
     Dates: start: 20220614
  2. CEFTRIAXONE [Suspect]
     Active Substance: CEFTRIAXONE
     Indication: Brain abscess
     Dosage: 2 GRAM, BID
     Route: 065
     Dates: start: 20220613, end: 20220708
  3. METRONIDAZOLE [Suspect]
     Active Substance: METRONIDAZOLE
     Indication: Brain abscess
     Dosage: 400 MG, TID
     Route: 048
     Dates: start: 20220613, end: 20220708

REACTIONS (1)
  - Neutropenia [Not Recovered/Not Resolved]

NARRATIVE: CASE EVENT DATE: 20220630
